FAERS Safety Report 7945270-8 (Version None)
Quarter: 2011Q4

REPORT INFORMATION
  Report Type: 
  Country: None (occurrence: None)
  Receive Date: 20111129
  Receipt Date: 20101101
  Transmission Date: 20120403
  Serious: No
  Sender: FDA-Public Use
  Company Number: US-GLAXOSMITHKLINE-A0889958A

PATIENT
  Age: 60 Year
  Sex: Female

DRUGS (7)
  1. LAMOTRIGINE [Concomitant]
  2. SUPPLEMENT [Concomitant]
     Indication: THYROID DISORDER
  3. CELEBREX [Concomitant]
  4. BUPROPION HYDROCHLORIDE [Suspect]
     Indication: DEPRESSION
     Dosage: 150MG PER DAY
     Route: 048
  5. PROMETRIUM [Concomitant]
  6. ESTROGENIC SUBSTANCE [Concomitant]
  7. DEPLIN [Concomitant]

REACTIONS (2)
  - THERAPEUTIC RESPONSE DECREASED [None]
  - DRUG INEFFECTIVE [None]
